FAERS Safety Report 7978118-6 (Version None)
Quarter: 2011Q4

REPORT INFORMATION
  Report Type: 
  Country: None (occurrence: None)
  Receive Date: 20111212
  Receipt Date: 20111212
  Transmission Date: 20120403
  Serious: Yes (Hospitalization)
  Sender: FDA-Public Use
  Company Number: None

PATIENT
  Sex: Female
  Weight: 71.8 kg

DRUGS (3)
  1. PACLITAXEL [Suspect]
     Dosage: 319 MG
     Dates: end: 20111101
  2. CISPLATIN [Suspect]
     Dosage: 91 MG
     Dates: end: 20111101
  3. LORAZEPAM [Concomitant]

REACTIONS (2)
  - URETERAL STENT INSERTION [None]
  - BLOOD CREATININE INCREASED [None]
